FAERS Safety Report 7292873-2 (Version None)
Quarter: 2011Q1

REPORT INFORMATION
  Report Type: 
  Country: None (occurrence: None)
  Receive Date: 20110215
  Receipt Date: 20110202
  Transmission Date: 20110831
  Serious: Yes (Other)
  Sender: FDA-Public Use
  Company Number: PHHY2011TR09860

PATIENT
  Age: 70 Year
  Sex: Female

DRUGS (5)
  1. ASPIRIN [Concomitant]
  2. ATORVASTATIN [Concomitant]
  3. NOOTROPIL [Concomitant]
  4. STARLIX [Concomitant]
  5. CO-DIOVAN [Suspect]
     Dosage: VALSARTAN  320MG AND HYDROCHLOROTIAZIDE 25MG
     Dates: start: 20110120, end: 20110121

REACTIONS (3)
  - NASAL OEDEMA [None]
  - RASH [None]
  - OEDEMA MOUTH [None]
